FAERS Safety Report 9492446 (Version 1)
Quarter: 2013Q3

REPORT INFORMATION
  Report Type: Spontaneous
  Country: CN (occurrence: CN)
  Receive Date: 20130830
  Receipt Date: 20130830
  Transmission Date: 20140515
  Serious: Yes (Other)
  Sender: FDA-Public Use
  Company Number: CN-PFIZER INC-2013248669

PATIENT
  Age: 2 Year
  Sex: Male
  Weight: 14 kg

DRUGS (1)
  1. SOLU-MEDROL [Suspect]
     Indication: BRONCHITIS
     Dosage: 20 MG, 1X/DAY
     Route: 041
     Dates: start: 20120602

REACTIONS (6)
  - Hypersensitivity [Recovering/Resolving]
  - Hypotension [Recovering/Resolving]
  - Tachypnoea [Recovering/Resolving]
  - Listless [Recovering/Resolving]
  - Pallor [Recovering/Resolving]
  - Papule [Recovered/Resolved]
